FAERS Safety Report 6661815-2 (Version None)
Quarter: 2010Q1

REPORT INFORMATION
  Report Type: 
  Country: None (occurrence: None)
  Receive Date: 20100331
  Receipt Date: 20090720
  Transmission Date: 20100710
  Serious: Yes (Other)
  Sender: FDA-Public Use
  Company Number: US-BRISTOL-MYERS SQUIBB COMPANY-14703136

PATIENT
  Age: 45 Year
  Sex: Male

DRUGS (6)
  1. ERBITUX [Suspect]
     Indication: TONSIL CANCER
     Route: 042
     Dates: start: 20090715, end: 20090715
  2. BENADRYL [Concomitant]
     Indication: PREMEDICATION
     Route: 042
  3. TYLENOL-500 [Concomitant]
     Indication: PREMEDICATION
  4. TAGAMET [Concomitant]
     Indication: PREMEDICATION
     Route: 042
  5. STEROIDS [Concomitant]
     Indication: PREMEDICATION
     Dosage: 6AND12 HOURS BEFORE TREATMENT
  6. DECADRON [Concomitant]
     Indication: PREMEDICATION
     Route: 042

REACTIONS (1)
  - INFUSION RELATED REACTION [None]
